FAERS Safety Report 7281652-8 (Version None)
Quarter: 2011Q1

REPORT INFORMATION
  Report Type: 
  Country: None (occurrence: None)
  Receive Date: 20110208
  Receipt Date: 20110131
  Transmission Date: 20110831
  Serious: Yes (Hospitalization)
  Sender: FDA-Public Use
  Company Number: JP-ELI_LILLY_AND_COMPANY-JP201102000389

PATIENT
  Age: 38 Year
  Sex: Female
  Weight: 25 kg

DRUGS (2)
  1. THYRADIN-S [Concomitant]
     Route: 048
  2. ZYPREXA [Suspect]
     Indication: EATING DISORDER
     Dosage: 2.5 MG, DAILY (1/D)
     Route: 048
     Dates: start: 20110106, end: 20110127

REACTIONS (3)
  - WHITE BLOOD CELL COUNT DECREASED [None]
  - OFF LABEL USE [None]
  - PYREXIA [None]
